FAERS Safety Report 10346613 (Version 2)
Quarter: 2014Q3

REPORT INFORMATION
  Report Type: Spontaneous
  Country: US (occurrence: US)
  Receive Date: 20140729
  Receipt Date: 20140902
  Transmission Date: 20150326
  Serious: No
  Sender: FDA-Public Use
  Company Number: US-BIOGENIDEC-2014BI073912

PATIENT
  Sex: Male

DRUGS (11)
  1. BUPROPRION [Concomitant]
     Active Substance: BUPROPION
  2. TYSABRI [Suspect]
     Active Substance: NATALIZUMAB
     Indication: MULTIPLE SCLEROSIS
     Route: 042
     Dates: start: 2002
  3. TYSABRI [Suspect]
     Active Substance: NATALIZUMAB
     Indication: MULTIPLE SCLEROSIS
     Route: 042
     Dates: start: 20070516, end: 20071004
  4. DAPSONE. [Concomitant]
     Active Substance: DAPSONE
     Indication: SKIN DISORDER
  5. AVONEX [Concomitant]
     Active Substance: INTERFERON BETA-1A
     Indication: MULTIPLE SCLEROSIS
     Route: 030
     Dates: start: 20131009
  6. VITAMINS [Concomitant]
     Active Substance: VITAMINS
  7. FIBER SUPPLEMENT [Concomitant]
     Indication: CONSTIPATION
  8. FLOMAX [Concomitant]
     Active Substance: TAMSULOSIN HYDROCHLORIDE
  9. TYSABRI [Suspect]
     Active Substance: NATALIZUMAB
     Indication: MULTIPLE SCLEROSIS
     Route: 042
     Dates: start: 20100622, end: 20130905
  10. AVONEX [Concomitant]
     Active Substance: INTERFERON BETA-1A
     Indication: MULTIPLE SCLEROSIS
     Route: 030
  11. OXYBUTIN CHLORIDE [Concomitant]
     Indication: MUSCLE DISORDER

REACTIONS (9)
  - Coordination abnormal [Not Recovered/Not Resolved]
  - Adverse drug reaction [Not Recovered/Not Resolved]
  - Mobility decreased [Not Recovered/Not Resolved]
  - Asthenia [Not Recovered/Not Resolved]
  - Frustration [Not Recovered/Not Resolved]
  - Balance disorder [Not Recovered/Not Resolved]
  - Drug ineffective [Unknown]
  - Fatigue [Recovered/Resolved]
  - Musculoskeletal pain [Not Recovered/Not Resolved]
